FAERS Safety Report 7649022-8 (Version None)
Quarter: 2011Q3

REPORT INFORMATION
  Report Type: 
  Country: None (occurrence: None)
  Receive Date: 20110802
  Receipt Date: 20110719
  Transmission Date: 20111222
  Serious: Yes (Hospitalization)
  Sender: FDA-Public Use
  Company Number: US-SHIRE-ALL1-2011-01693

PATIENT
  Sex: Male
  Weight: 24.762 kg

DRUGS (5)
  1. BENADRYL [Concomitant]
     Indication: PRODUCT USED FOR UNKNOWN INDICATION
     Dosage: UNK, UNKNOWN
     Route: 065
  2. INTUNIV [Suspect]
     Dosage: 3 MG, OTHER (3MG AT BEDTIME)
     Route: 048
     Dates: start: 20110101, end: 20110528
  3. CONCERTA [Concomitant]
     Indication: PRODUCT USED FOR UNKNOWN INDICATION
     Dosage: UNK, UNKNOWN
     Route: 065
     Dates: start: 20060101
  4. INTUNIV [Suspect]
     Indication: ATTENTION DEFICIT/HYPERACTIVITY DISORDER
     Dosage: 1 MG, UNKNOWN
     Route: 048
     Dates: start: 20110420, end: 20110505
  5. INTUNIV [Suspect]
     Dosage: 2 MG, UNKNOWN
     Route: 048
     Dates: start: 20110506

REACTIONS (3)
  - LOSS OF CONSCIOUSNESS [None]
  - PALLOR [None]
  - ABDOMINAL PAIN [None]
